FAERS Safety Report 7015287-9 (Version None)
Quarter: 2010Q3

REPORT INFORMATION
  Report Type: 
  Country: None (occurrence: None)
  Receive Date: 20100924
  Receipt Date: 20100924
  Transmission Date: 20110219
  Serious: No
  Sender: FDA-Public Use
  Company Number: None

PATIENT
  Age: 77 Year
  Sex: Male
  Weight: 83.73 kg

DRUGS (1)
  1. NAFCILLIN [Suspect]
     Indication: INFECTION
     Dosage: 2 GM OTHER IV
     Route: 042
     Dates: start: 20100726, end: 20100728

REACTIONS (3)
  - BENIGN PROSTATIC HYPERPLASIA [None]
  - OBSTRUCTIVE UROPATHY [None]
  - RENAL FAILURE [None]
